FAERS Safety Report 7491871-3 (Version None)
Quarter: 2011Q2

REPORT INFORMATION
  Report Type: 
  Country: None (occurrence: None)
  Receive Date: 20110518
  Receipt Date: 20110518
  Transmission Date: 20111010
  Serious: Yes (Hospitalization)
  Sender: FDA-Public Use
  Company Number: None

PATIENT
  Sex: Female
  Weight: 57 kg

DRUGS (12)
  1. ALTACE [Concomitant]
  2. CYCLOPHOSPHAMIDE [Suspect]
     Dosage: 3960 MG
     Dates: end: 20110428
  3. TAXOL [Suspect]
     Dosage: 1744 MG
     Dates: end: 20110310
  4. ASPIRIN [Concomitant]
  5. VITAMIN D [Concomitant]
  6. CALCIUM CARBONATE [Concomitant]
  7. ATENOLOL [Concomitant]
  8. FISH OIL [Concomitant]
  9. EVISTA [Concomitant]
  10. DOXORUBICIN HYDROCHLORIDE [Suspect]
     Dosage: 397 MG
     Dates: end: 20110428
  11. CRESTOR [Concomitant]
  12. CARBOPLATIN [Suspect]
     Dosage: 2680 MG
     Dates: end: 20110224

REACTIONS (7)
  - FATIGUE [None]
  - BODY TEMPERATURE INCREASED [None]
  - MALAISE [None]
  - WHITE BLOOD CELL COUNT DECREASED [None]
  - NEUTROPENIA [None]
  - HAEMOGLOBIN DECREASED [None]
  - PLATELET COUNT DECREASED [None]
